FAERS Safety Report 18621931 (Version 3)
Quarter: 2021Q1

REPORT INFORMATION
  Report Type: Report from Study
  Country: None (occurrence: NZ)
  Receive Date: 20201215
  Receipt Date: 20210117
  Transmission Date: 20210419
  Serious: Yes (Hospitalization)
  Sender: FDA-Public Use
  Company Number: NZ-ABBVIE-20K-118-3691373-00

PATIENT
  Age: 49 Year
  Sex: Male

DRUGS (1)
  1. HUMIRA [Suspect]
     Active Substance: ADALIMUMAB
     Indication: PSORIASIS
     Route: 058
     Dates: start: 20160520

REACTIONS (4)
  - Hip arthroplasty [Recovering/Resolving]
  - Weight increased [Not Recovered/Not Resolved]
  - Psoriasis [Unknown]
  - Wound [Recovered/Resolved]

NARRATIVE: CASE EVENT DATE: 202011
